FAERS Safety Report 21007672 (Version 1)
Quarter: 2022Q3

REPORT INFORMATION
  Report Type: Report from Study
  Country: BR (occurrence: BR)
  Receive Date: 20220627
  Receipt Date: 20220627
  Transmission Date: 20221027
  Serious: Yes (Other)
  Sender: FDA-Public Use
  Company Number: BR-NOVARTISPH-NVSC2022BR145026

PATIENT
  Age: 78 Year
  Sex: Female

DRUGS (7)
  1. EXELON [Suspect]
     Active Substance: RIVASTIGMINE TARTRATE
     Indication: Dementia Alzheimer^s type
     Dosage: PATCH 15 (CM2) OR CONTAINS BASE LOADED WITH 27 MG RIVASTIGMINE / DAILY (DELIVERED) DOSE = 13.3 MG
     Route: 062
     Dates: start: 201806
  2. MEMANTINE [Concomitant]
     Active Substance: MEMANTINE
     Indication: Dementia Alzheimer^s type
     Dosage: UNK
     Route: 065
  3. QUETIAPINE [Concomitant]
     Active Substance: QUETIAPINE
     Indication: Dementia Alzheimer^s type
     Dosage: UNK
     Route: 065
  4. MIRTAZAPINE [Concomitant]
     Active Substance: MIRTAZAPINE
     Indication: Dementia Alzheimer^s type
     Dosage: UNK
     Route: 065
  5. PIPOTIAZINE [Concomitant]
     Active Substance: PIPOTIAZINE
     Indication: Insomnia
     Dosage: UNK
     Route: 065
  6. CHLORTHALIDONE [Concomitant]
     Active Substance: CHLORTHALIDONE
     Indication: Hypertension
     Dosage: UNK
     Route: 065
  7. ALENIA [Concomitant]
     Indication: Asthma
     Dosage: UNK, (INHALED CAPSULE)
     Route: 065

REACTIONS (2)
  - Seizure [Unknown]
  - Off label use [Unknown]

NARRATIVE: CASE EVENT DATE: 20220601
